FAERS Safety Report 21047531 (Version 1)
Quarter: 2022Q3

REPORT INFORMATION
  Report Type: Spontaneous
  Country: CN (occurrence: None)
  Receive Date: 20220706
  Receipt Date: 20220706
  Transmission Date: 20221027
  Serious: Yes (Other)
  Sender: FDA-Public Use
  Company Number: 2022A240707

PATIENT
  Age: 20776 Day
  Sex: Male
  Weight: 50 kg

DRUGS (2)
  1. OSIMERTINIB MESYLATE [Suspect]
     Active Substance: OSIMERTINIB MESYLATE
     Indication: Chemotherapy
     Route: 048
     Dates: start: 20211223, end: 20211231
  2. SAVOLITINIB [Suspect]
     Active Substance: SAVOLITINIB
     Indication: Chemotherapy
     Route: 048
     Dates: start: 20211223, end: 20211231

REACTIONS (1)
  - Myelosuppression [Recovering/Resolving]

NARRATIVE: CASE EVENT DATE: 20211229
